FAERS Safety Report 9406990 (Version 6)
Quarter: 2013Q4

REPORT INFORMATION
  Report Type: Spontaneous
  Country: US (occurrence: US)
  Receive Date: 20130718
  Receipt Date: 20131213
  Transmission Date: 20140711
  Serious: No
  Sender: FDA-Public Use
  Company Number: US-PFIZER INC-2013207337

PATIENT
  Age: 46 Year
  Sex: Female
  Weight: 108 kg

DRUGS (34)
  1. LYRICA [Suspect]
     Indication: NERVE COMPRESSION
     Dosage: 50 MG, DAILY
     Route: 048
     Dates: start: 2013
  2. LYRICA [Suspect]
     Indication: NERVE INJURY
     Dosage: 50 MG, TWO TIMES A DAY
     Route: 048
     Dates: start: 2013
  3. LYRICA [Suspect]
     Indication: PAIN PROPHYLAXIS
     Dosage: 100 MG, TWO TIMES A DAY
     Route: 048
  4. LYRICA [Suspect]
     Dosage: 50 MG, 2X/DAY
     Route: 048
  5. LYRICA [Suspect]
     Dosage: UNK
  6. LYRICA [Suspect]
     Dosage: 300 MG, (200MG MORNING+ 100MG AFTERNOON)
     Route: 048
  7. TOPAMAX [Concomitant]
     Indication: MIGRAINE
     Dosage: (TWO TABLETS OF 100MG) TWO TIMES A DAY
     Route: 048
  8. TOPAMAX [Concomitant]
     Dosage: 500 MG, DAILY (2 TAB P.O. Q.A.M. TAKE 3 TAB Q.P.M)
  9. FOLIC ACID [Concomitant]
     Dosage: 1 MG, TWO TIMES A DAY(1 TAB PO BID)
     Route: 048
  10. VITAMIN B6 [Concomitant]
     Dosage: 5 MG, DAILY
     Route: 048
  11. VITAMIN B6 [Concomitant]
     Dosage: 50 MG, DAILY
     Route: 048
  12. VERELAN PM [Concomitant]
     Indication: MIGRAINE
     Dosage: (TWO CAPSULES OF 100MG) DAILY/2 CAP PO QHS
     Route: 048
  13. BLACK COHOSH [Concomitant]
     Indication: SUPPLEMENTATION THERAPY
     Dosage: (TWO CAPSULES OF 175MG) TWO TIMES A DAY
     Route: 048
  14. FIORICET [Concomitant]
     Indication: MIGRAINE
     Dosage: UNK, AS NEEDED
     Route: 048
  15. FIORICET [Concomitant]
     Dosage: 1 DF, (50-325-40; 1 TAB PO PRN Q6H)
  16. IMITREX STATDOSE SYSTEM [Concomitant]
     Indication: MIGRAINE
     Dosage: 6 MG, AS NEEDED (EVERY 12 IN 24 HRS)
     Route: 058
  17. FLONASE [Concomitant]
     Indication: UPPER-AIRWAY COUGH SYNDROME
     Dosage: 0.05 %, DAILY
     Route: 045
  18. FLONASE [Concomitant]
     Dosage: 50 UG, DAILY (50MCG/ACT QD)
  19. ZANAFLEX [Concomitant]
     Indication: GASTROINTESTINAL PAIN
     Dosage: 4 MG, DAILY
     Route: 048
  20. ZANAFLEX [Concomitant]
     Indication: GASTROINTESTINAL PAIN
  21. GARCINIA CAMBOGIA [Concomitant]
     Indication: METABOLIC DISORDER
     Dosage: (TWO CAPSULES OF 1000MG), DAILY
     Route: 048
  22. GARCINIA CAMBOGIA [Concomitant]
     Indication: HORMONE LEVEL ABNORMAL
     Dosage: (500-200 MG) 2 CAPS, DAILY
  23. ESTRADIOL [Concomitant]
     Indication: OESTROGEN DEFICIENCY
     Dosage: 1 MG, DAILY
  24. MOTRIN [Concomitant]
     Indication: MYALGIA
     Dosage: 1200 MG, AS NEEDED
     Route: 048
  25. MOTRIN [Concomitant]
     Indication: MIGRAINE
  26. ALEVE [Concomitant]
     Indication: BONE PAIN
     Dosage: (TWO TABLETS OF 220MG), AS NEEDED
     Route: 048
  27. ALEVE [Concomitant]
     Indication: ARTHRALGIA
  28. MIGRELIEF TRIPLE THERAPY [Concomitant]
     Indication: MIGRAINE
     Dosage: DAILY IN THE MORNING
  29. MIGRELIEF TRIPLE THERAPY [Concomitant]
     Dosage: TWICE DAILY (BID)
  30. MIGRELIEF M [Concomitant]
     Indication: HORMONE LEVEL ABNORMAL
     Dosage: 200-180-50 MG
     Route: 048
  31. OXYBUTYNIN [Concomitant]
     Dosage: 10 MG, 1X/DAY
  32. TYLENOL SINUS CONGESTION [Concomitant]
     Dosage: STRENGTH 5-325-200
  33. FLEXERIL [Concomitant]
     Dosage: 10 MG, 1X/DAY
     Route: 048
  34. VALTREX [Concomitant]
     Dosage: 500 MG, 3X/DAY (1 TAB P.O. T.I.D. FOR 10 DAYS)

REACTIONS (4)
  - Rash pruritic [Recovering/Resolving]
  - Rash papular [Recovering/Resolving]
  - Local swelling [Recovering/Resolving]
  - Feeling abnormal [Unknown]
